FAERS Safety Report 11446184 (Version 2)
Quarter: 2015Q3

REPORT INFORMATION
  Report Type: Report from Study
  Country: US (occurrence: US)
  Receive Date: 20150902
  Receipt Date: 20150922
  Transmission Date: 20151125
  Serious: Yes (Hospitalization, Other)
  Sender: FDA-Public Use
  Company Number: US-ACTELION-A-US2015-123346

PATIENT
  Age: 12 Year
  Sex: Male

DRUGS (12)
  1. DIAZEPAM. [Concomitant]
     Active Substance: DIAZEPAM
  2. OXYGEN. [Concomitant]
     Active Substance: OXYGEN
  3. VALPROIC ACID. [Concomitant]
     Active Substance: VALPROIC ACID
  4. RISPERIDONE. [Concomitant]
     Active Substance: RISPERIDONE
  5. LORAZEPAM. [Concomitant]
     Active Substance: LORAZEPAM
  6. MIRALAX [Concomitant]
     Active Substance: POLYETHYLENE GLYCOL 3350
  7. TRANSDERM SCOP [Concomitant]
     Active Substance: SCOPOLAMINE
  8. ONFI [Concomitant]
     Active Substance: CLOBAZAM
  9. ZAVESCA [Suspect]
     Active Substance: MIGLUSTAT
     Indication: NIEMANN-PICK DISEASE
     Dosage: 100 MG BID AND 200 MG QPM
     Route: 048
     Dates: start: 20130925
  10. PATANASE [Concomitant]
     Active Substance: OLOPATADINE HYDROCHLORIDE
  11. CULTURELLE KIDS PACKETS [Concomitant]
  12. FLUTICASONE [Concomitant]
     Active Substance: FLUTICASONE\FLUTICASONE PROPIONATE

REACTIONS (3)
  - Vomiting [Recovered/Resolved]
  - Dehydration [Recovered/Resolved]
  - Feeding tube complication [Recovered/Resolved]
